FAERS Safety Report 4840144-3 (Version None)
Quarter: 2005Q4

REPORT INFORMATION
  Report Type: 
  Country: None (occurrence: None)
  Receive Date: 20051129
  Receipt Date: 20051118
  Transmission Date: 20060501
  Serious: Yes (Other)
  Sender: FDA-Public Use
  Company Number: US-AVENTIS-200519548US

PATIENT
  Sex: Female

DRUGS (7)
  1. LANTUS [Suspect]
     Indication: DIABETES MELLITUS
     Dosage: DOSE UNIT: UNITS
     Route: 058
     Dates: start: 20050728, end: 20050804
  2. LANTUS [Suspect]
     Dosage: DOSE UNIT: UNITS
     Route: 058
     Dates: start: 20050805, end: 20050807
  3. LANTUS [Suspect]
     Dosage: DOSE UNIT: UNITS
     Route: 058
     Dates: start: 20050808, end: 20050814
  4. GLIPIZIDE [Concomitant]
     Dosage: DOSE: UNK
  5. SYNTHROID [Concomitant]
     Dosage: DOSE: UNK
  6. ATENOLOL [Concomitant]
     Dosage: DOSE: UNK
  7. LISINOPRIL [Concomitant]
     Dosage: DOSE: UNK

REACTIONS (13)
  - ABDOMINAL PAIN UPPER [None]
  - BLINDNESS UNILATERAL [None]
  - BLOOD AMYLASE INCREASED [None]
  - BLOOD GLUCOSE INCREASED [None]
  - EAR PAIN [None]
  - HEADACHE [None]
  - MIGRAINE [None]
  - OPTIC ISCHAEMIC NEUROPATHY [None]
  - PHARYNGOLARYNGEAL PAIN [None]
  - RETINAL VASCULAR DISORDER [None]
  - VISION BLURRED [None]
  - VISUAL DISTURBANCE [None]
  - XANTHOPSIA [None]
